FAERS Safety Report 9240154 (Version 2)
Quarter: 2013Q2

REPORT INFORMATION
  Report Type: Spontaneous
  Country: JP (occurrence: None)
  Receive Date: 20130417
  Receipt Date: 20130523
  Transmission Date: 20140414
  Serious: Yes (Hospitalization, Other)
  Sender: FDA-Public Use
  Company Number: 2009JP001723

PATIENT
  Age: 31 Year
  Sex: Female
  Weight: 43 kg

DRUGS (46)
  1. PROGRAF (TACROLIMUS) CAPSULE [Suspect]
     Indication: LUPUS NEPHRITIS
     Dosage: 3 MG, UNKNOWN/D, ORAL
     Route: 048
     Dates: start: 20070514, end: 20120927
  2. PREDNISOLONE [Suspect]
     Indication: LUPUS NEPHRITIS
     Dosage: 15 MG, UNKNOWN/D, ORAL
     Route: 048
     Dates: end: 20070805
  3. AZATHIOPRINE (AZATHIOPRINE) [Concomitant]
  4. BREDININ (MIZORIBINE) [Concomitant]
  5. LIPITOR (ATORVASTATIN CALCIUM) [Concomitant]
  6. NU-LOTAN (LOSARTAN POTASSIUM) [Concomitant]
  7. COMELAN (DILAZEP DIHYDROCHLORIDE) [Concomitant]
  8. FOSAMAC (ALENDRONATE SODIUM) [Concomitant]
  9. SELBEX (TEPRENONE) [Concomitant]
  10. METHYCOBAL (MECOBALAMIN) [Concomitant]
  11. CRAVIT (LEVOFLOXACIN) [Concomitant]
  12. NAUZELIN (DOMPERIDONE) [Concomitant]
  13. ENTERONON R (BIFIDOBACTERIUM BIFIDUM, LACTOBACILLUS ACIDOPHILUS, LACTOBACILLUS LACTIS, STREPTOCOCCUS FAECALIS, STREPTOCOCCUS LACTIS) [Concomitant]
  14. ZITHROMAC (AZITHROMYCIN) [Concomitant]
  15. MUCODYNE (CARBOCISTEINE) [Concomitant]
  16. RESPLEN (EPRAZINONE HYDROCHLORIDE) [Concomitant]
  17. THEODUR (THEOPHYLLINE) [Concomitant]
  18. MEPTIN AIR (PROCATEROL HYDROCHLORIDE) [Concomitant]
  19. CORTICOSTEROID NOS (CORTICOSTEROID NOS) [Concomitant]
  20. ALFAROL (ALFACALCIDOL) [Concomitant]
  21. ORADOL /00093302/ (DOMIPHEN BROMIDE) [Concomitant]
  22. VALTREX (VALACICLOVIR HYDROCHLORIDE) [Concomitant]
  23. COIX SEED EXTRACT (COIX LACRYMA-JOBI SEED EXTRACT) [Concomitant]
  24. ONEALFA (ALFACALCIDOL) [Concomitant]
  25. ALDOMET /00000103/ (METHYLDOPA HYDROCHLORIDE) [Concomitant]
  26. ADALAT L (NIFEDIPINE) [Concomitant]
  27. HOKUNALIN /00654901/(TULOBUTEROL) [Concomitant]
  28. CLARITIN REDITABS (LORATADINE) [Concomitant]
  29. FLAVITAN (FLAVINE ADENINE DINUCLEOTIDE) [Concomitant]
  30. ALOSENN /00654901/ (ACHILLEA MILLEFOLIUM, RUBIA TINCTORUM ROOT TINCTURE, SENNA ALEXANDRINA, FRUIT, SENNA ALEXANDRINA LEAF, TARAXACUM OFFICINALE) [Concomitant]
  31. OMEPRAL /00661201/ (OMEPRAZOLE) [Concomitant]
  32. ZITHROMAC (AZITHROMYCIN) [Concomitant]
  33. NEO MINOPHAGEN C (CYCSTEINE HYDROCHLORIDE, GLYCINE, GLYCYRRHIZIC ACID, AMMONIUM SALT) [Concomitant]
  34. FLUITRAN (TRICHLORMETHIAZIDE) [Concomitant]
  35. RULID (ROXITHROMYCIN) [Concomitant]
  36. ADOAIR (FLUTICASONE PROPIONATE, SALEMETEROL XINAFOATE) [Concomitant]
  37. THEOLONG (THEOPHYLLINE) [Concomitant]
  38. PROMAC /01312301/ (POLAPREZINC) [Concomitant]
  39. ROCEPHINE (CEFTRIAXONE SODIUM) [Concomitant]
  40. CALONAL (PARACETAMOL) [Concomitant]
  41. OLMETEC (OLMESARTAN MEDOXOMIL) [Concomitant]
  42. OXAROL (MAXACALCITOL) [Concomitant]
  43. LULICON (LULICONAZOLE) [Concomitant]
  44. AZUNOL /00317302/(SODIUM GUALENATE) [Concomitant]
  45. ?PETROLATUM (PETROLATUM) [Concomitant]
  46. EURAX (CROTAMITON) [Concomitant]

REACTIONS (27)
  - Pruritus generalised [None]
  - Herpes zoster [None]
  - Skin papilloma [None]
  - Gastroenteritis viral [None]
  - Bronchitis [None]
  - Lower limb fracture [None]
  - Upper respiratory tract inflammation [None]
  - Constipation [None]
  - Gastritis [None]
  - Headache [None]
  - Hypertension [None]
  - Dyspepsia [None]
  - Sinusitis [None]
  - Gastrooesophageal reflux disease [None]
  - Asthma [None]
  - Seasonal allergy [None]
  - Glossitis [None]
  - Oedema [None]
  - Body tinea [None]
  - Zinc deficiency [None]
  - Oral candidiasis [None]
  - Hyperuricaemia [None]
  - Pharyngitis [None]
  - Lymphadenitis [None]
  - Hypertension [None]
  - Alopecia [None]
  - Tremor [None]
